FAERS Safety Report 19462879 (Version 1)
Quarter: 2021Q2

REPORT INFORMATION
  Report Type: Spontaneous
  Country: US (occurrence: US)
  Receive Date: 20210625
  Receipt Date: 20210625
  Transmission Date: 20210717
  Serious: Yes (Other)
  Sender: FDA-Public Use
  Company Number: US-INSUD PHARMA-2106US00693

PATIENT

DRUGS (6)
  1. METHOHEXITAL [Concomitant]
     Active Substance: METHOHEXITAL
     Indication: GENERAL ANAESTHESIA
     Dosage: 40 MILLIGRAM, 2ND ECT
  2. METHOHEXITAL [Concomitant]
     Active Substance: METHOHEXITAL
     Dosage: 120 MILLIGRAM, 1ST ECT
  3. OXYGEN. [Concomitant]
     Active Substance: OXYGEN
     Indication: GENERAL ANAESTHESIA
     Dosage: HYPERVENTILATION, 20 L/MIN FOR 60 SECONDS
  4. TESTOSTERONE. [Suspect]
     Active Substance: TESTOSTERONE
     Indication: GENDER REASSIGNMENT THERAPY
     Dosage: WEEKLY INJECTIONS
     Route: 030
  5. REMIFENTANIL [Interacting]
     Active Substance: REMIFENTANIL
     Indication: GENERAL ANAESTHESIA
     Dosage: 200 MICROGRAM, SINGLE; 2ND ECT
     Route: 065
  6. SUCCINYLCHOLINE [SUXAMETHONIUM] [Concomitant]
     Active Substance: SUCCINYLCHOLINE
     Indication: GENERAL ANAESTHESIA
     Dosage: 100 MILLIGRAM, 1ST + 2ND ECT

REACTIONS (4)
  - Bradycardia [Recovered/Resolved]
  - Cardiac arrest [Recovered/Resolved]
  - Rhythm idioventricular [Recovered/Resolved]
  - Drug interaction [Recovered/Resolved]
